FAERS Safety Report 6264810-0 (Version None)
Quarter: 2009Q3

REPORT INFORMATION
  Report Type: 
  Country: None (occurrence: None)
  Receive Date: 20090710
  Receipt Date: 20090701
  Transmission Date: 20100115
  Serious: No
  Sender: FDA-Public Use
  Company Number: CO-BAXTER-2009BH011114

PATIENT
  Age: 50 Year
  Sex: Female

DRUGS (2)
  1. TISSUCOL/TISSEEL KIT STIM3 [Suspect]
     Indication: THERAPEUTIC PROCEDURE
     Route: 065
     Dates: start: 20090618, end: 20090618
  2. ANTITHROMBOTIC AGENTS [Concomitant]

REACTIONS (3)
  - ABDOMINAL WALL HAEMORRHAGE [None]
  - DRUG INEFFECTIVE [None]
  - EXPIRED DRUG ADMINISTERED [None]
